FAERS Safety Report 13701776 (Version 1)
Quarter: 2017Q2

REPORT INFORMATION
  Report Type: Spontaneous
  Country: US (occurrence: US)
  Receive Date: 20170629
  Receipt Date: 20170629
  Transmission Date: 20170830
  Serious: Yes (Hospitalization)
  Sender: FDA-Public Use
  Company Number: None

PATIENT
  Age: 64 Year
  Sex: Male
  Weight: 92 kg

DRUGS (1)
  1. OXALIPLATIN. [Suspect]
     Active Substance: OXALIPLATIN
     Indication: CHEMOTHERAPY
     Route: 042
     Dates: start: 20170222, end: 20170517

REACTIONS (10)
  - Dizziness [None]
  - Tongue pruritus [None]
  - Anaphylactic reaction [None]
  - Infusion related reaction [None]
  - Syncope [None]
  - Presyncope [None]
  - Nasal pruritus [None]
  - Throat irritation [None]
  - Fall [None]
  - Hypotension [None]

NARRATIVE: CASE EVENT DATE: 20170517
